FAERS Safety Report 5236251-6 (Version None)
Quarter: 2007Q1

REPORT INFORMATION
  Report Type: 
  Country: None (occurrence: None)
  Receive Date: 20070212
  Receipt Date: 20070129
  Transmission Date: 20070707
  Serious: Yes (Other)
  Sender: FDA-Public Use
  Company Number: US-ELI_LILLY_AND_COMPANY-US200701005852

PATIENT
  Age: 10 Year
  Sex: Male
  Weight: 56.689 kg

DRUGS (2)
  1. STRATTERA [Suspect]
     Indication: ATTENTION DEFICIT/HYPERACTIVITY DISORDER
     Dosage: 40 MG, UNK
     Route: 048
     Dates: start: 20070126
  2. KLONOPIN [Concomitant]
     Indication: ANXIETY
     Dosage: UNK MG, UNK

REACTIONS (4)
  - FEELING ABNORMAL [None]
  - HEAD INJURY [None]
  - LOSS OF CONSCIOUSNESS [None]
  - POST CONCUSSION SYNDROME [None]
